FAERS Safety Report 5706177-X (Version None)
Quarter: 2008Q2

REPORT INFORMATION
  Report Type: 
  Country: None (occurrence: None)
  Receive Date: 20080415
  Receipt Date: 20080409
  Transmission Date: 20081010
  Serious: Yes (Death, Hospitalization)
  Sender: FDA-Public Use
  Company Number: US-GILEAD-2008-0015961

PATIENT
  Sex: Male

DRUGS (15)
  1. LETAIRIS [Suspect]
     Indication: PULMONARY HYPERTENSION
     Route: 048
     Dates: start: 20080201
  2. CIPROFLOXACIN [Concomitant]
     Indication: CLOSTRIDIUM DIFFICILE COLITIS
  3. VANCOMYCIN [Concomitant]
     Indication: CLOSTRIDIUM DIFFICILE COLITIS
  4. DIGOXIN [Concomitant]
  5. SYNTHROID [Concomitant]
  6. FLOMAX [Concomitant]
  7. MITERGENE [Concomitant]
  8. PROTONIX [Concomitant]
  9. MEGACE [Concomitant]
  10. ARICEPT [Concomitant]
  11. GUAIFENESIN [Concomitant]
  12. NEUTRA-PHOS [Concomitant]
  13. CELEXA [Concomitant]
  14. TRAZODONE HCL [Concomitant]
  15. FLO-RESTER [Concomitant]

REACTIONS (2)
  - CARDIOMYOPATHY [None]
  - CHRONIC OBSTRUCTIVE PULMONARY DISEASE [None]
